FAERS Safety Report 7148704-4 (Version None)
Quarter: 2010Q4

REPORT INFORMATION
  Report Type: 
  Country: None (occurrence: None)
  Receive Date: 20101209
  Receipt Date: 20101125
  Transmission Date: 20110411
  Serious: Yes (Hospitalization, Other)
  Sender: FDA-Public Use
  Company Number: FR-ROCHE-744847

PATIENT
  Sex: Male

DRUGS (8)
  1. VALIUM [Suspect]
     Route: 048
     Dates: end: 20101111
  2. RISPERDAL [Suspect]
     Route: 048
     Dates: start: 20090101, end: 20101111
  3. ATARAX [Suspect]
     Route: 048
     Dates: end: 20101111
  4. TOPIRAMATE [Concomitant]
     Dosage: 0.5 TABLET IN THE MORNING AND 1 TABLET IN THE EVENING
  5. ANDROCUR [Concomitant]
     Dosage: 1 TABLET IN THE MORNING
  6. LARGACTIL [Concomitant]
     Dosage: 200 MG IN THE EVENING IF HE NEED AND LARGACTIL BY IM IF AGITATION
     Route: 030
  7. THERALENE [Concomitant]
     Indication: INSOMNIA
  8. DAFALGAN [Concomitant]
     Indication: PAIN

REACTIONS (5)
  - BLOOD CREATINE PHOSPHOKINASE INCREASED [None]
  - CYTOLYTIC HEPATITIS [None]
  - MUSCLE RIGIDITY [None]
  - PSYCHOMOTOR SKILLS IMPAIRED [None]
  - PYREXIA [None]
